FAERS Safety Report 6235567-4 (Version None)
Quarter: 2009Q2

REPORT INFORMATION
  Report Type: 
  Country: None (occurrence: None)
  Receive Date: 20090616
  Receipt Date: 20090604
  Transmission Date: 20091009
  Serious: Yes (Other)
  Sender: FDA-Public Use
  Company Number: A-CH2009-25709

PATIENT
  Age: 81 Year
  Sex: Female
  Weight: 47.5 kg

DRUGS (7)
  1. TRACLEER [Suspect]
     Indication: PULMONARY ARTERIAL HYPERTENSION
     Dosage: 125 MG, BID, ORAL, 62.5 MG, OD, ORAL,
     Dates: end: 20090528
  2. LOFTYL (BUFLOMEDIL HYDROCHLORIDE) [Concomitant]
  3. TENORMIN [Concomitant]
  4. ALDACTAZINE (ALTIZIDE, SPIRONOLACTONE) [Concomitant]
  5. ACETYLSALICYLIC ACID SRT [Concomitant]
  6. HALCION [Concomitant]
  7. AMLODIPINE BESYLATE [Concomitant]

REACTIONS (6)
  - ALANINE AMINOTRANSFERASE INCREASED [None]
  - ASPARTATE AMINOTRANSFERASE INCREASED [None]
  - BLOOD ALKALINE PHOSPHATASE INCREASED [None]
  - DIARRHOEA [None]
  - DRUG INEFFECTIVE [None]
  - HEPATIC ENZYME ABNORMAL [None]
